FAERS Safety Report 4964167-9 (Version None)
Quarter: 2006Q1

REPORT INFORMATION
  Report Type: 
  Country: None (occurrence: None)
  Receive Date: 20060331
  Receipt Date: 20060316
  Transmission Date: 20060701
  Serious: Yes (Death)
  Sender: FDA-Public Use
  Company Number: S06-NOR-01283-01

PATIENT
  Age: 19 Year
  Sex: Female

DRUGS (2)
  1. CITALOPRAM HYDROBROMIDE [Suspect]
     Indication: DEPRESSION
     Dosage: 20 MG QD PO
     Route: 048
     Dates: start: 20040527
  2. SOBRIL (OXAZEPAM) [Concomitant]

REACTIONS (23)
  - ANTIDEPRESSANT DRUG LEVEL [None]
  - ANXIETY [None]
  - BLOOD CALCIUM DECREASED [None]
  - BLOOD SODIUM ABNORMAL [None]
  - BODY TEMPERATURE INCREASED [None]
  - CARDIAC ARREST [None]
  - CARDIAC FAILURE [None]
  - CARDIOGENIC SHOCK [None]
  - CEREBRAL DISORDER [None]
  - ELECTROCARDIOGRAM QT CORRECTED INTERVAL PROLONGED [None]
  - ELECTROCARDIOGRAM QT PROLONGED [None]
  - GENE MUTATION [None]
  - HAEMOGLOBIN DECREASED [None]
  - HEPATIC FAILURE [None]
  - INTERNATIONAL NORMALISED RATIO INCREASED [None]
  - MULTI-ORGAN FAILURE [None]
  - OVARIAN CYST [None]
  - POST PROCEDURAL NAUSEA [None]
  - PROCEDURAL PAIN [None]
  - RENAL FAILURE [None]
  - RHABDOMYOLYSIS [None]
  - SYNCOPE [None]
  - VENTRICULAR FIBRILLATION [None]
